FAERS Safety Report 6751454-7 (Version None)
Quarter: 2010Q2

REPORT INFORMATION
  Report Type: 
  Country: None (occurrence: None)
  Receive Date: 20100602
  Receipt Date: 20100524
  Transmission Date: 20101027
  Serious: Yes (Hospitalization)
  Sender: FDA-Public Use
  Company Number: US-ROCHE-704621

PATIENT
  Age: 31 Year
  Sex: Male

DRUGS (9)
  1. VESANOID [Suspect]
     Indication: DRUG USE FOR UNKNOWN INDICATION
     Dosage: FORMULATION: PILLS, DOSAGE REGIMEN: 100 PILLS OF 10 MG TRETINOIN
     Route: 048
  2. VESANOID [Suspect]
     Route: 048
  3. EPIVIR [Concomitant]
  4. VIOGEN-C [Concomitant]
     Dosage: DRUG NAME: VIOGEN
  5. TRICOR [Concomitant]
  6. LISINOPRIL [Concomitant]
  7. ALLOPURINOL [Concomitant]
  8. ACYCLOVIR [Concomitant]
  9. ANDROGEL [Concomitant]

REACTIONS (3)
  - DIARRHOEA [None]
  - OVERDOSE [None]
  - SUICIDE ATTEMPT [None]
